FAERS Safety Report 9297579 (Version 1)
Quarter: 2013Q2

REPORT INFORMATION
  Report Type: Spontaneous
  Country: US (occurrence: None)
  Receive Date: 20130517
  Receipt Date: 20130517
  Transmission Date: 20140414
  Serious: No
  Sender: FDA-Public Use
  Company Number: None

PATIENT
  Age: 72 Year
  Sex: Male
  Weight: 74.84 kg

DRUGS (2)
  1. BAYER ADVANCED ASPIRIN EXTRA STRENGTH [Suspect]
     Indication: MYALGIA
  2. BAYER ADVANCED ASPIRIN EXTRA STRENGTH [Suspect]
     Indication: ARTHRALGIA

REACTIONS (2)
  - Product quality issue [None]
  - Unevaluable event [None]
